FAERS Safety Report 7058376-5 (Version None)
Quarter: 2010Q4

REPORT INFORMATION
  Report Type: 
  Country: None (occurrence: None)
  Receive Date: 20101022
  Receipt Date: 20101014
  Transmission Date: 20110411
  Serious: No
  Sender: FDA-Public Use
  Company Number: US-PFIZER INC-2010123850

PATIENT
  Sex: Male
  Weight: 79.365 kg

DRUGS (8)
  1. XALATAN [Suspect]
     Indication: INTRAOCULAR PRESSURE INCREASED
     Dosage: UNK
  2. XALATAN [Suspect]
     Dosage: UNK
     Route: 047
  3. LATANOPROST [Suspect]
  4. METFORMIN [Concomitant]
     Indication: DIABETES MELLITUS
     Dosage: 1 MG, 2X/DAY
     Route: 048
  5. DICLOFENAC SODIUM [Concomitant]
     Indication: ARTHRITIS
     Dosage: 500 MG, 3X/DAY
     Route: 048
  6. OMEPRAZOLE [Concomitant]
     Indication: GASTROOESOPHAGEAL REFLUX DISEASE
     Dosage: 20 MG, 1X/DAY
     Route: 048
  7. AMLODIPINE BESILATE / OLMESARTAN MEDOXOMIL [Concomitant]
     Indication: HYPERTENSION
     Dosage: 5/40
     Route: 048
  8. ACETYLSALICYLIC ACID [Concomitant]
     Dosage: 81 MG, 1X/DAY
     Route: 048

REACTIONS (2)
  - BODY HEIGHT DECREASED [None]
  - EYE IRRITATION [None]
